FAERS Safety Report 13450180 (Version 1)
Quarter: 2017Q2

REPORT INFORMATION
  Report Type: Spontaneous
  Country: US (occurrence: US)
  Receive Date: 20170417
  Receipt Date: 20170417
  Transmission Date: 20170830
  Serious: No
  Sender: FDA-Public Use
  Company Number: US-BION-20160506

PATIENT
  Age: 69 Year
  Sex: Female
  Weight: 71.67 kg

DRUGS (3)
  1. ALEVE [Suspect]
     Active Substance: NAPROXEN SODIUM
     Indication: PAIN
     Dosage: 1 DF AS NEEDED
     Route: 048
     Dates: end: 20160909
  2. LISINOPRIL. [Concomitant]
     Active Substance: LISINOPRIL
  3. BAYER GENUINE ASPIRIN [Suspect]
     Active Substance: ASPIRIN

REACTIONS (2)
  - Blood pressure increased [Unknown]
  - Product use issue [Unknown]
